FAERS Safety Report 8214036-6 (Version None)
Quarter: 2012Q1

REPORT INFORMATION
  Report Type: 
  Country: None (occurrence: None)
  Receive Date: 20120314
  Receipt Date: 20120314
  Transmission Date: 20120608
  Serious: Yes (Hospitalization)
  Sender: FDA-Public Use
  Company Number: None

PATIENT
  Sex: Female
  Weight: 52.7 kg

DRUGS (2)
  1. PHENERGAN [Suspect]
     Indication: PAIN
     Dosage: 25 MG ONE TIME IV
     Route: 042
     Dates: start: 20120211
  2. PHENERGAN [Suspect]
     Indication: HIP FRACTURE
     Dosage: 25 MG ONE TIME IV
     Route: 042
     Dates: start: 20120211

REACTIONS (9)
  - PROTRUSION TONGUE [None]
  - INCOHERENT [None]
  - EYE MOVEMENT DISORDER [None]
  - VISION BLURRED [None]
  - APHASIA [None]
  - FEAR [None]
  - FEELING ABNORMAL [None]
  - VERTIGO [None]
  - NERVOUSNESS [None]
